FAERS Safety Report 9384343 (Version 2)
Quarter: 2013Q3

REPORT INFORMATION
  Report Type: Report from Study
  Country: BR (occurrence: BR)
  Receive Date: 20130705
  Receipt Date: 20130916
  Transmission Date: 20140515
  Serious: Yes (Hospitalization, Other)
  Sender: FDA-Public Use
  Company Number: PHHY2013BR069706

PATIENT
  Sex: Male
  Weight: 70 kg

DRUGS (9)
  1. EXELON PATCH [Suspect]
     Indication: PROMOTION OF WOUND HEALING
     Dosage: 1 DF, DAILY
     Route: 062
     Dates: start: 20130502, end: 20130710
  2. EXELON PATCH [Suspect]
     Indication: OFF LABEL USE
  3. POVIDONE-IODINE [Suspect]
     Dosage: UNK UKN, UNK
  4. STALEVO [Concomitant]
     Indication: MOBILITY DECREASED
     Dosage: 4 DF, QD
     Route: 048
  5. SEROQUEL [Concomitant]
     Indication: PARKINSON^S DISEASE
     Dosage: 3 DF, QD
     Route: 048
  6. VITAMIN D [Concomitant]
     Indication: VITAMIN D DEFICIENCY
     Dosage: UNK UKN, UNK
     Route: 048
  7. VITAMIN E [Concomitant]
     Indication: VITAMIN E DEFICIENCY
     Dosage: 1 DF, QD
     Route: 048
  8. VALDOXAN [Concomitant]
     Indication: SEDATIVE THERAPY
     Dosage: 1 DF, QHS
     Route: 048
  9. CHONDROITIN [Concomitant]
     Indication: ARTHROPATHY
     Dosage: 3 DF, QD
     Route: 048

REACTIONS (9)
  - Postoperative wound infection [Recovered/Resolved]
  - Pyrexia [Recovered/Resolved]
  - Erythema [Recovered/Resolved]
  - Local swelling [Recovered/Resolved]
  - Hot flush [Recovered/Resolved]
  - Aphonia [Recovering/Resolving]
  - Nervousness [Recovered/Resolved]
  - Hypertension [Recovered/Resolved]
  - Anxiety [Recovered/Resolved]
